FAERS Safety Report 5251515-8 (Version None)
Quarter: 2007Q1

REPORT INFORMATION
  Report Type: 
  Country: None (occurrence: None)
  Receive Date: 20070228
  Receipt Date: 20060522
  Transmission Date: 20070707
  Serious: No
  Sender: FDA-Public Use
  Company Number: US-GLAXOSMITHKLINE-A0606520A

PATIENT
  Age: 44 Year
  Sex: Female

DRUGS (8)
  1. LAMICTAL [Suspect]
     Indication: BIPOLAR II DISORDER
     Dosage: 150MG PER DAY
     Route: 048
  2. WELLBUTRIN [Suspect]
     Indication: DRUG USE FOR UNKNOWN INDICATION
     Dosage: 300MG PER DAY
     Route: 048
  3. FOSAMAX [Suspect]
  4. NEURONTIN [Suspect]
  5. NALEX [Concomitant]
  6. ESTRACE [Concomitant]
  7. KLONOPIN [Concomitant]
  8. BUSPAR [Concomitant]

REACTIONS (1)
  - BLOOD CREATININE DECREASED [None]
